FAERS Safety Report 24170330 (Version 1)
Quarter: 2024Q3

REPORT INFORMATION
  Report Type: Spontaneous
  Country: GB (occurrence: GB)
  Receive Date: 20240803
  Receipt Date: 20240803
  Transmission Date: 20241017
  Serious: Yes (Other)
  Sender: TEVA
  Company Number: None

PATIENT
  Age: 74 Year

DRUGS (15)
  1. AMITRIPTYLINE [Suspect]
     Active Substance: AMITRIPTYLINE
     Dosage: NIGHT
     Route: 065
  2. ASPIRIN [Concomitant]
     Active Substance: ASPIRIN
     Route: 065
  3. IPRATROPIUM [Concomitant]
     Active Substance: IPRATROPIUM
     Dosage: 20 MICROGRAMS / DOSE INHALER CFC FREE
     Route: 055
  4. SPIRIVA RESPIMAT [Concomitant]
     Active Substance: TIOTROPIUM BROMIDE
     Dosage: SPIRIVA RESPIMAT 2.5 MICROGRAMS / DOSE INHALATION SOLUTION CARTRIDGE WITH DEVICE
     Route: 065
  5. GLIMEPIRIDE [Concomitant]
     Active Substance: GLIMEPIRIDE
     Route: 065
  6. METFORMIN [Concomitant]
     Active Substance: METFORMIN HYDROCHLORIDE
     Dosage: 500 MG TABLETS TAKE TWO TWICE DAILY WITH FOOD
     Route: 065
  7. ATORVASTATIN [Concomitant]
     Active Substance: ATORVASTATIN
     Route: 065
  8. BISACODYL [Concomitant]
     Active Substance: BISACODYL
     Dosage: NIGHT
     Route: 065
  9. BISOPROLOL [Suspect]
     Active Substance: BISOPROLOL\BISOPROLOL FUMARATE
     Route: 065
  10. CODEINE [Concomitant]
     Active Substance: CODEINE
     Dosage: 30 MG TABLETS ONE OR TWO TO BE TAKEN EVERY FOUR HOURS WHEN NECESSARY. MAXIMUM 8 IN 24 HOURS
     Route: 065
  11. BUPRENORPHINE [Concomitant]
     Active Substance: BUPRENORPHINE
     Route: 065
  12. ETANERCEPT [Concomitant]
     Active Substance: ETANERCEPT
     Indication: Ankylosing spondylitis
     Dosage: ACUTE/OTHER. ?ADMINISTERS ON THURSDAYS IN ALTERNATING THIGHS. DELIVERED TO HIM. HAS 8 INJECTIONS ...
     Route: 065
     Dates: start: 2016
  13. UREA [Concomitant]
     Active Substance: UREA
     Route: 061
  14. ALBUTEROL [Concomitant]
     Active Substance: ALBUTEROL
     Dosage: 100 MICROGRAMS / DOSE INHALER CFC FREE ONE OR TWO PUFFS TO BE INHALED UP TO FOUR TIMES A DAY
     Route: 055
  15. GABAPENTIN [Concomitant]
     Active Substance: GABAPENTIN
     Route: 065

REACTIONS (1)
  - Atrioventricular block [Unknown]
